FAERS Safety Report 6412528-3 (Version None)
Quarter: 2009Q4

REPORT INFORMATION
  Report Type: 
  Country: None (occurrence: None)
  Receive Date: 20091023
  Receipt Date: 20090812
  Transmission Date: 20100525
  Serious: Yes (Other)
  Sender: FDA-Public Use
  Company Number: US-BRISTOL-MYERS SQUIBB COMPANY-14732325

PATIENT
  Age: 60 Year
  Sex: Female

DRUGS (2)
  1. KENALOG-40 [Suspect]
     Indication: ARTHRITIS
     Dosage: INTRAJOINT - START DATE OF THERAPY BETWEEN NOV/DEC08
     Route: 014
     Dates: start: 20080101
  2. METFORMIN HCL [Suspect]
     Indication: TYPE 2 DIABETES MELLITUS
     Route: 048

REACTIONS (1)
  - DIABETES MELLITUS [None]
